FAERS Safety Report 9292840 (Version 2)
Quarter: 2013Q4

REPORT INFORMATION
  Report Type: Spontaneous
  Country: US (occurrence: US)
  Receive Date: 20130516
  Receipt Date: 20131209
  Transmission Date: 20140711
  Serious: Yes (Other)
  Sender: FDA-Public Use
  Company Number: US-PFIZER INC-2013148829

PATIENT
  Age: 66 Year
  Sex: Male
  Weight: 90 kg

DRUGS (22)
  1. LIPITOR [Suspect]
     Indication: HYPERCHOLESTEROLAEMIA
     Dosage: 40 MG, AT BEDTIME
     Dates: start: 20130722
  2. LIPITOR [Suspect]
     Dosage: UNK, ALTERNATE DAY
     Route: 048
  3. CELEBREX [Suspect]
     Indication: ARTHRITIS
     Dosage: 200 MG, 2X/DAY
     Dates: start: 20131119
  4. MORPHINE [Concomitant]
     Indication: PAIN
     Dosage: 80 MG, 1X/DAY
  5. LIDODERM [Concomitant]
     Indication: BACK PAIN
     Dosage: 1-3 PATCH APPLY FOR 12 HOURS
     Dates: start: 20130722
  6. OXYCODONE HYDROCHLORIDE [Concomitant]
     Indication: POST LAMINECTOMY SYNDROME
     Dosage: 10 MG (2 CAPSULES OF 5 MG) EVERY 4 HOURS AS NEEDED
     Dates: start: 20131119
  7. OXYCODONE HYDROCHLORIDE [Concomitant]
     Indication: CAUDA EQUINA SYNDROME
  8. AMITRIPTYLINE HYDROCHLORIDE [Concomitant]
     Indication: MYALGIA
     Dosage: 150 MG (2 TABLETS OF 75 MG) AT BEDTIME
     Dates: start: 20121108
  9. AMITRIPTYLINE HYDROCHLORIDE [Concomitant]
     Indication: MYOSITIS
  10. BETAMETHASONE DIPROPIONATE OINTMENT [Concomitant]
     Indication: POST LAMINECTOMY SYNDROME
     Dosage: APPLY TWICE DAILY TO AFFECTED AREA
     Dates: start: 20130918
  11. BETAMETHASONE DIPROPIONATE OINTMENT [Concomitant]
     Indication: CAUDA EQUINA SYNDROME
  12. FLOMAX [Concomitant]
     Dosage: 0.4 MG TWO TIMES DAILY
     Dates: start: 20131015
  13. LOVASTATIN [Concomitant]
     Indication: HYPERCHOLESTEROLAEMIA
     Dosage: 40 MG AT BEDTIME
     Dates: start: 20120103
  14. BACTROBAN [Concomitant]
     Indication: POST LAMINECTOMY SYNDROME
     Dosage: APPLY TWO TIMES DAILY
     Dates: start: 20130918
  15. BACTROBAN [Concomitant]
     Indication: CAUDA EQUINA SYNDROME
  16. AMITIZA [Concomitant]
     Indication: CONSTIPATION
     Dosage: 24 MCG TWO TIMES DAILY
     Dates: start: 20130722
  17. MS CONTIN [Concomitant]
     Indication: POST LAMINECTOMY SYNDROME
     Dosage: 15 MG, 1 TABLET ER 12 HR AM, 1 NOON, 2 HS
     Dates: start: 20131119
  18. MS CONTIN [Concomitant]
     Indication: CAUDA EQUINA SYNDROME
  19. LEVITRA [Concomitant]
     Indication: POST LAMINECTOMY SYNDROME
     Dosage: 20 MG
     Dates: start: 20130520
  20. ROBAXIN [Concomitant]
     Indication: POST LAMINECTOMY SYNDROME
     Dosage: 750 MG THREE TIMES DAILY, AS NEEDED
     Dates: start: 20130520
  21. MIRTAZAPINE [Concomitant]
     Indication: POST LAMINECTOMY SYNDROME
     Dosage: 45 MG, AT BEDTIME
     Dates: start: 20130918
  22. MIRTAZAPINE [Concomitant]
     Indication: CAUDA EQUINA SYNDROME

REACTIONS (1)
  - Spinal disorder [Unknown]
